FAERS Safety Report 8789839 (Version 2)
Quarter: 2012Q4

REPORT INFORMATION
  Report Type: 
  Country: JP (occurrence: JP)
  Receive Date: 20120917
  Receipt Date: 20120925
  Transmission Date: 20130627
  Serious: Yes (Death, Hospitalization)
  Sender: FDA-Public Use
  Company Number: JP-ASTRAZENECA-2012SE71855

PATIENT
  Age: 72 Year
  Sex: Female

DRUGS (1)
  1. OMEPRAL [Suspect]
     Indication: SUPERIOR MESENTERIC ARTERY SYNDROME
     Route: 048
     Dates: start: 20120830, end: 20120901

REACTIONS (2)
  - Pneumonia aspiration [Fatal]
  - Drug-induced liver injury [Recovering/Resolving]
